FAERS Safety Report 9967364 (Version 2)
Quarter: 2014Q1

REPORT INFORMATION
  Report Type: Report from Study
  Country: US (occurrence: US)
  Receive Date: 20140305
  Receipt Date: 20140305
  Transmission Date: 20141002
  Serious: Yes (Hospitalization)
  Sender: FDA-Public Use
  Company Number: US-ABBVIE-13P-163-1124766-00

PATIENT
  Age: 51 Year
  Sex: Female

DRUGS (15)
  1. HUMIRA [Suspect]
     Indication: RHEUMATOID ARTHRITIS
     Dates: start: 20130510, end: 20130624
  2. GABAPENTIN [Concomitant]
     Indication: DIABETIC NEUROPATHY
  3. TRAMADOL [Concomitant]
     Indication: PAIN
     Dosage: 1 IN 6 HOURS AS NEEDED
  4. BYSTOLIC [Concomitant]
     Indication: HYPERTENSION
  5. XANAX [Concomitant]
     Indication: INSOMNIA
     Dosage: AT BEDTIME
  6. PLAQUENIL [Concomitant]
     Indication: PRODUCT USED FOR UNKNOWN INDICATION
  7. ISOSORBIDE MONONITRATE [Concomitant]
     Indication: PRODUCT USED FOR UNKNOWN INDICATION
  8. LANTUS [Concomitant]
     Indication: PRODUCT USED FOR UNKNOWN INDICATION
  9. HUMALOG [Concomitant]
     Indication: PRODUCT USED FOR UNKNOWN INDICATION
     Dosage: BEFORE MEALS AND THEN AS NEEDED SLIDING SCALE
  10. OMEPRAZOLE [Concomitant]
     Indication: PRODUCT USED FOR UNKNOWN INDICATION
  11. PREDNISONE [Concomitant]
     Indication: STEROID THERAPY
  12. TUSSIONEX [Concomitant]
     Indication: COUGH
  13. PLAVIX [Concomitant]
     Indication: ANTICOAGULANT THERAPY
  14. DUONEB [Concomitant]
     Indication: CHRONIC OBSTRUCTIVE PULMONARY DISEASE
     Dosage: EVERY 4-6 HOURS PER NEBULIZER
  15. PULMICORT [Concomitant]
     Indication: CHRONIC OBSTRUCTIVE PULMONARY DISEASE
     Dosage: TWICE DAILY PER NEBULIZER

REACTIONS (2)
  - Bronchitis [Not Recovered/Not Resolved]
  - Pneumonia [Recovering/Resolving]
